FAERS Safety Report 23213957 (Version 1)
Quarter: 2023Q4

REPORT INFORMATION
  Report Type: Spontaneous
  Country: US (occurrence: None)
  Receive Date: 20231121
  Receipt Date: 20231121
  Transmission Date: 20240109
  Serious: No
  Sender: FDA-Public Use
  Company Number: None

PATIENT
  Age: 14 Year
  Sex: Female
  Weight: 98.1 kg

DRUGS (1)
  1. BEYFORTUS [Suspect]
     Active Substance: NIRSEVIMAB-ALIP
     Indication: Respiratory syncytial virus immunisation
     Dosage: 1 ML MILLITRE ONE TIME INTRAMUSCULAR
     Route: 030
     Dates: start: 20231120

REACTIONS (1)
  - Accidental overdose [None]

NARRATIVE: CASE EVENT DATE: 20231120
